FAERS Safety Report 5302734-3 (Version None)
Quarter: 2007Q2

REPORT INFORMATION
  Report Type: 
  Country: None (occurrence: None)
  Receive Date: 20070419
  Receipt Date: 20070410
  Transmission Date: 20071010
  Serious: Yes (Hospitalization)
  Sender: FDA-Public Use
  Company Number: IT-PFIZER INC-2007029460

PATIENT
  Sex: Male
  Weight: 70 kg

DRUGS (9)
  1. SU-011,248 [Suspect]
     Indication: METASTATIC RENAL CELL CARCINOMA
     Route: 048
     Dates: start: 20051205, end: 20070301
  2. OMEPRAZOLE [Concomitant]
     Route: 048
  3. SUCRALFIN [Concomitant]
     Route: 048
  4. ZANEDIP [Concomitant]
     Route: 048
  5. OLMESARTAN MEDOXOMIL [Concomitant]
     Route: 048
     Dates: start: 20060607, end: 20070323
  6. EUTIROX [Concomitant]
     Route: 048
  7. MODURETIC 5-50 [Concomitant]
     Route: 048
     Dates: start: 20060308, end: 20070323
  8. PROSCAR [Concomitant]
     Route: 048
  9. ARANESP [Concomitant]
     Route: 058

REACTIONS (2)
  - CONGESTIVE CARDIOMYOPATHY [None]
  - DYSPNOEA [None]
